FAERS Safety Report 6165210-4 (Version None)
Quarter: 2009Q2

REPORT INFORMATION
  Report Type: 
  Country: None (occurrence: None)
  Receive Date: 20090423
  Receipt Date: 20090413
  Transmission Date: 20091009
  Serious: Yes (Hospitalization)
  Sender: FDA-Public Use
  Company Number: IN-PFIZER INC-2008089688

PATIENT

DRUGS (1)
  1. MAGNEX [Suspect]
     Dosage: 2 G, 2X/DAY
     Route: 042
     Dates: start: 20080923, end: 20080925

REACTIONS (3)
  - BLOOD PRESSURE DECREASED [None]
  - DRUG INEFFECTIVE [None]
  - PYREXIA [None]
